FAERS Safety Report 9661122 (Version 2)
Quarter: 2013Q4

REPORT INFORMATION
  Report Type: Report from Study
  Country: US (occurrence: US)
  Receive Date: 20131031
  Receipt Date: 20131219
  Transmission Date: 20140711
  Serious: Yes (Other)
  Sender: FDA-Public Use
  Company Number: US-JNJFOC-20131017627

PATIENT
  Age: 54 Year
  Sex: Male
  Weight: 96.16 kg

DRUGS (18)
  1. SIMPONI [Suspect]
     Indication: PSORIATIC ARTHROPATHY
     Route: 058
     Dates: start: 2013
  2. SIMPONI [Suspect]
     Indication: RHEUMATOID ARTHRITIS
     Route: 058
     Dates: start: 2013
  3. REMICADE [Suspect]
     Indication: PRODUCT USED FOR UNKNOWN INDICATION
     Route: 042
  4. PATADAY [Suspect]
     Indication: MULTIPLE ALLERGIES
     Route: 031
  5. MEDROL [Concomitant]
     Indication: ARTHRITIS
     Route: 065
  6. MEDROL [Concomitant]
     Indication: RHEUMATOID ARTHRITIS
     Route: 065
  7. FOLIC ACID [Concomitant]
     Indication: RHEUMATOID ARTHRITIS
     Route: 065
  8. FOLIC ACID [Concomitant]
     Indication: LIVER INJURY
     Route: 065
  9. METHOTREXATE [Concomitant]
     Indication: ARTHRITIS
     Route: 058
  10. METHOTREXATE [Concomitant]
     Indication: RHEUMATOID ARTHRITIS
     Route: 058
  11. CYMBALTA [Concomitant]
     Indication: RHEUMATOID ARTHRITIS
     Route: 065
  12. LISINOPRIL [Concomitant]
     Indication: HYPERTENSION
     Route: 065
  13. TRAZODONE [Concomitant]
     Indication: SLEEP DISORDER
     Route: 065
  14. LOVAZA [Concomitant]
     Indication: BLOOD CHOLESTEROL
     Route: 065
  15. ACIPHEX [Concomitant]
     Indication: GASTROOESOPHAGEAL REFLUX DISEASE
     Route: 048
  16. SENNA [Concomitant]
     Indication: RHEUMATOID ARTHRITIS
     Route: 065
  17. XANAX [Concomitant]
     Indication: RHEUMATOID ARTHRITIS
     Route: 065
  18. WELLBUTRIN [Concomitant]
     Indication: ANXIETY
     Route: 065

REACTIONS (2)
  - Diabetes mellitus [Recovering/Resolving]
  - Bronchitis [Unknown]
